FAERS Safety Report 13562377 (Version 1)
Quarter: 2017Q2

REPORT INFORMATION
  Report Type: Spontaneous
  Country: US (occurrence: US)
  Receive Date: 20170519
  Receipt Date: 20170519
  Transmission Date: 20170830
  Serious: Yes (Hospitalization, Other)
  Sender: FDA-Public Use
  Company Number: US-CIPLA LTD.-2017US08006

PATIENT

DRUGS (2)
  1. LAMOTRIGINE. [Suspect]
     Active Substance: LAMOTRIGINE
     Dosage: UNK
     Route: 065
  2. LAMOTRIGINE. [Suspect]
     Active Substance: LAMOTRIGINE
     Dosage: UNK (DOSE INCREASED BY 33%)
     Route: 065

REACTIONS (4)
  - Hepatitis [Unknown]
  - Drug hypersensitivity [Unknown]
  - Autoimmune hypothyroidism [Unknown]
  - Parvovirus B19 infection [Unknown]
